FAERS Safety Report 12759636 (Version 1)
Quarter: 2016Q3

REPORT INFORMATION
  Report Type: Spontaneous
  Country: US (occurrence: US)
  Receive Date: 20160919
  Receipt Date: 20160919
  Transmission Date: 20161109
  Serious: No
  Sender: FDA-Public Use
  Company Number: US-ASTRAZENECA-2016SE94433

PATIENT
  Age: 51 Year
  Sex: Female

DRUGS (2)
  1. SEROQUEL [Suspect]
     Active Substance: QUETIAPINE FUMARATE
     Indication: DEPRESSION
     Route: 048
     Dates: start: 2004, end: 2006
  2. REXULTI [Concomitant]
     Active Substance: BREXPIPRAZOLE
     Route: 048

REACTIONS (6)
  - Product use issue [Unknown]
  - Somnolence [Unknown]
  - Fatigue [Unknown]
  - Tardive dyskinesia [Recovered/Resolved]
  - Sinus disorder [Not Recovered/Not Resolved]
  - Aphonia [Not Recovered/Not Resolved]

NARRATIVE: CASE EVENT DATE: 2016
